FAERS Safety Report 12239214 (Version 1)
Quarter: 2016Q2

REPORT INFORMATION
  Report Type: Spontaneous
  Country: US (occurrence: US)
  Receive Date: 20160405
  Receipt Date: 20160405
  Transmission Date: 20160815
  Serious: Yes (Other)
  Sender: FDA-Public Use
  Company Number: US-CITRON PHARMA LLC-B16-0031-AE

PATIENT
  Age: 62 Year
  Sex: Female

DRUGS (1)
  1. FURADANTIN  ORAL SUSPENSION [Suspect]
     Active Substance: NITROFURANTOIN
     Indication: URINARY TRACT INFECTION
     Dosage: 100 MG, QD
     Route: 065

REACTIONS (11)
  - Non-small cell lung cancer stage IV [Recovering/Resolving]
  - Weight decreased [Unknown]
  - Alanine aminotransferase increased [Unknown]
  - Productive cough [Recovering/Resolving]
  - Adenocarcinoma [Not Recovered/Not Resolved]
  - Dyspnoea [Recovering/Resolving]
  - Fatigue [Recovering/Resolving]
  - Hypoxia [Unknown]
  - Aspartate aminotransferase increased [Unknown]
  - Pulmonary toxicity [Unknown]
  - Drug-induced liver injury [Unknown]
